FAERS Safety Report 8940646 (Version 2)
Quarter: 2013Q3

REPORT INFORMATION
  Report Type: Report from Study
  Country: AU (occurrence: AU)
  Receive Date: 20121203
  Receipt Date: 20130722
  Transmission Date: 20140515
  Serious: Yes (Hospitalization, Other)
  Sender: FDA-Public Use
  Company Number: PHHY2012AU110351

PATIENT
  Age: 62 Year
  Sex: Male

DRUGS (10)
  1. ACLASTA [Suspect]
     Indication: OSTEOPOROTIC FRACTURE
     Dosage: 5 MG, UNK
     Route: 042
     Dates: start: 20111219
  2. ACLASTA [Suspect]
     Dosage: 5 MG, UNK
     Route: 042
     Dates: start: 20121116
  3. EFUDIX [Concomitant]
     Dosage: APPLY NOCTE
     Dates: start: 20060628
  4. FLUVAX [Concomitant]
     Dosage: UNK
     Route: 058
     Dates: start: 20090319
  5. KARVEA [Concomitant]
     Indication: HYPERTENSION
     Dosage: 300 MG, 1 MANE
     Route: 048
     Dates: start: 20130226
  6. NASONEX [Concomitant]
     Indication: CHRONIC SINUSITIS
     Dosage: 2 SPRAYS EACH NOSTRIL
     Dates: start: 20130226
  7. ONBREZ BREEZHALER [Concomitant]
     Indication: CHRONIC OBSTRUCTIVE PULMONARY DISEASE
     Dosage: 1 DF, UNK
     Dates: start: 20120917
  8. OSTELIN VITAMIN D [Concomitant]
     Indication: VITAMIN D DEFICIENCY
     Dosage: 1 DF, TID
     Route: 048
     Dates: start: 20111116
  9. PANADEINE FORTE [Concomitant]
     Indication: BACK PAIN
     Dosage: 1-2 TID PRN
     Route: 048
     Dates: start: 20130627
  10. VENTOLINE [Concomitant]
     Indication: CHRONIC OBSTRUCTIVE PULMONARY DISEASE
     Dosage: 2 DF, Q4H PRN
     Dates: start: 20130314

REACTIONS (6)
  - Fall [Recovered/Resolved with Sequelae]
  - Hip fracture [Recovered/Resolved]
  - Lumbar vertebral fracture [Recovered/Resolved]
  - Back pain [Recovered/Resolved]
  - Rib fracture [Recovered/Resolved]
  - Cough [Recovered/Resolved with Sequelae]
